FAERS Safety Report 25220626 (Version 1)
Quarter: 2025Q2

REPORT INFORMATION
  Report Type: Report from Study
  Country: IT (occurrence: IT)
  Receive Date: 20250421
  Receipt Date: 20250421
  Transmission Date: 20250716
  Serious: Yes (Other)
  Sender: PFIZER
  Company Number: None

PATIENT
  Age: 76 Year
  Sex: Female

DRUGS (2)
  1. CARBOPLATIN [Interacting]
     Active Substance: CARBOPLATIN
     Indication: Ovarian epithelial cancer
     Route: 042
  2. PACLITAXEL [Interacting]
     Active Substance: PACLITAXEL
     Indication: Ovarian epithelial cancer
     Route: 042

REACTIONS (3)
  - Febrile neutropenia [Recovered/Resolved]
  - Thrombocytopenia [Recovering/Resolving]
  - Drug interaction [Unknown]

NARRATIVE: CASE EVENT DATE: 20240901
